FAERS Safety Report 13949082 (Version 1)
Quarter: 2017Q3

REPORT INFORMATION
  Report Type: Report from Study
  Country: NL (occurrence: NL)
  Receive Date: 20170908
  Receipt Date: 20170908
  Transmission Date: 20171128
  Serious: Yes (Hospitalization)
  Sender: FDA-Public Use
  Company Number: PHHO2005NL022415

PATIENT
  Age: 57 Year
  Sex: Male

DRUGS (6)
  1. MICONAZOLE. [Concomitant]
     Active Substance: MICONAZOLE
     Indication: RASH
     Route: 065
     Dates: start: 20041205, end: 20041208
  2. ZINC. [Concomitant]
     Active Substance: ZINC
     Indication: RASH
     Route: 065
     Dates: start: 20041110, end: 20041205
  3. FLOXAPEN [Concomitant]
     Active Substance: FLUCLOXACILLIN
     Indication: RASH PUSTULAR
     Route: 065
     Dates: start: 20050401
  4. OFATUMUMAB [Suspect]
     Active Substance: OFATUMUMAB
     Indication: CHRONIC LYMPHOCYTIC LEUKAEMIA
     Dosage: ONE DOSE OF HUMAX CD20, 100MG AND THREE DOSES OF HUMAX-CD20, 500MG
     Route: 042
     Dates: start: 20041115, end: 20041206
  5. PARACETAMOL [Concomitant]
     Active Substance: ACETAMINOPHEN
     Indication: HERPES ZOSTER
     Route: 065
  6. ACICLOVIR [Concomitant]
     Active Substance: ACYCLOVIR
     Indication: HERPES ZOSTER
     Route: 065
     Dates: start: 20050314

REACTIONS (1)
  - Herpes zoster [Recovering/Resolving]

NARRATIVE: CASE EVENT DATE: 20050314
